FAERS Safety Report 21312426 (Version 1)
Quarter: 2022Q3

REPORT INFORMATION
  Report Type: Spontaneous
  Country: US (occurrence: None)
  Receive Date: 20220909
  Receipt Date: 20220909
  Transmission Date: 20221027
  Serious: No
  Sender: FDA-Public Use
  Company Number: US-ARIS GLOBAL-202206-1025

PATIENT
  Sex: Female
  Weight: 95.794 kg

DRUGS (20)
  1. OXERVATE [Suspect]
     Active Substance: CENEGERMIN-BKBJ
     Indication: Neurotrophic keratopathy
     Route: 047
     Dates: start: 20220525, end: 20220530
  2. EUTHYROX [Concomitant]
     Active Substance: LEVOTHYROXINE SODIUM
  3. ATORVASTATIN CALCIUM [Concomitant]
     Active Substance: ATORVASTATIN CALCIUM
  4. NAPROXEN [Concomitant]
     Active Substance: NAPROXEN
  5. VITAMINS [Concomitant]
     Active Substance: VITAMINS
  6. CALCIUM\CHOLECALCIFEROL [Concomitant]
     Active Substance: CALCIUM\CHOLECALCIFEROL
     Dosage: 600MG-12.5 EXTENDED RELEASE TABLET
  7. LEVOTHYROXINE [Concomitant]
     Active Substance: LEVOTHYROXINE
  8. LISINOPRIL [Concomitant]
     Active Substance: LISINOPRIL
  9. FUROSEMIDE [Concomitant]
     Active Substance: FUROSEMIDE
  10. SERTRALINE HYDROCHLORIDE [Concomitant]
     Active Substance: SERTRALINE HYDROCHLORIDE
  11. METOLAZONE [Concomitant]
     Active Substance: METOLAZONE
  12. ASPIRIN [Concomitant]
     Active Substance: ASPIRIN
  13. TRESIBA [Concomitant]
     Active Substance: INSULIN DEGLUDEC
  14. FERROUS SULFATE [Concomitant]
     Active Substance: FERROUS SULFATE
     Dosage: 325(65) MG
  15. OMEPRAZOLE [Concomitant]
     Active Substance: OMEPRAZOLE
  16. DIALYVITE [Concomitant]
     Active Substance: ASCORBIC ACID\BIOTIN\CALCIUM PANTOTHENATE\COBALAMIN\FOLIC ACID\NIACINAMIDE\PYRIDOXINE HYDROCHLORIDE\
     Dosage: 1 MG-100MG
  17. KANJINTI [Concomitant]
     Active Substance: TRASTUZUMAB-ANNS
     Dosage: VIAL
  18. GABAPENTIN [Concomitant]
     Active Substance: GABAPENTIN
  19. NOVOLOG [Concomitant]
     Active Substance: INSULIN ASPART
     Dosage: 100/ML (3) INSULIN PEN
  20. LETROZOLE [Concomitant]
     Active Substance: LETROZOLE

REACTIONS (1)
  - Eye pain [Unknown]
